FAERS Safety Report 11245774 (Version 1)
Quarter: 2015Q3

REPORT INFORMATION
  Report Type: Spontaneous
  Country: US (occurrence: US)
  Receive Date: 20150707
  Receipt Date: 20150707
  Transmission Date: 20151125
  Serious: No
  Sender: FDA-Public Use
  Company Number: US-009507513-1506USA012984

PATIENT
  Sex: Female

DRUGS (1)
  1. BELSOMRA [Suspect]
     Active Substance: SUVOREXANT
     Indication: INSOMNIA
     Dosage: 10 MG, ONE AT NIGHT
     Route: 048
     Dates: start: 20150623

REACTIONS (2)
  - Somnolence [Not Recovered/Not Resolved]
  - Drug effect prolonged [Not Recovered/Not Resolved]

NARRATIVE: CASE EVENT DATE: 20150624
